FAERS Safety Report 5056031-4 (Version None)
Quarter: 2006Q3

REPORT INFORMATION
  Report Type: 
  Country: None (occurrence: None)
  Receive Date: 20060717
  Receipt Date: 20060717
  Transmission Date: 20061208
  Serious: Yes (Life-Threatening)
  Sender: FDA-Public Use
  Company Number: None

PATIENT
  Age: 67 Year
  Sex: Female
  Weight: 78.4723 kg

DRUGS (3)
  1. NEULASTA [Suspect]
     Indication: BONE MARROW FAILURE
     Dosage: 6MG  ONCE  SQ
     Route: 058
     Dates: start: 20060623, end: 20060623
  2. NEULASTA [Suspect]
     Indication: NON-SMALL CELL LUNG CANCER
     Dosage: 6MG  ONCE  SQ
     Route: 058
     Dates: start: 20060623, end: 20060623
  3. NEULASTA [Suspect]
     Indication: PROPHYLAXIS
     Dosage: 6MG  ONCE  SQ
     Route: 058
     Dates: start: 20060623, end: 20060623

REACTIONS (5)
  - DRUG HYPERSENSITIVITY [None]
  - DYSPNOEA [None]
  - PHARYNGEAL OEDEMA [None]
  - RASH PRURITIC [None]
  - STRIDOR [None]
